FAERS Safety Report 5759610-1 (Version None)
Quarter: 2008Q2

REPORT INFORMATION
  Report Type: 
  Country: None (occurrence: None)
  Receive Date: 20080605
  Receipt Date: 20080527
  Transmission Date: 20081010
  Serious: Yes (Other)
  Sender: FDA-Public Use
  Company Number: US-ELI_LILLY_AND_COMPANY-US200805005976

PATIENT
  Sex: Male

DRUGS (4)
  1. CIALIS [Suspect]
  2. VIAGRA [Concomitant]
     Indication: PROSTATECTOMY
     Dosage: 100 MG, UNK
  3. VIAGRA [Concomitant]
     Dosage: UNK, DAILY (1/D)
     Route: 048
  4. LEVITRA [Concomitant]

REACTIONS (2)
  - CYANOPSIA [None]
  - RETINAL ISCHAEMIA [None]
